FAERS Safety Report 25629477 (Version 2)
Quarter: 2025Q4

REPORT INFORMATION
  Report Type: Spontaneous
  Country: US (occurrence: None)
  Receive Date: 20250731
  Receipt Date: 20251001
  Transmission Date: 20260118
  Serious: No
  Sender: ALKERMES
  Company Number: US-ALKERMES INC.-ALK-2025-001790

PATIENT
  Age: 34 Year
  Sex: Male
  Weight: 118.82 kg

DRUGS (8)
  1. LYBALVI [Suspect]
     Active Substance: OLANZAPINE\SAMIDORPHAN L-MALATE
     Indication: Schizoaffective disorder bipolar type
     Dosage: 10/10 MILLIGRAM, QD
  2. LYBALVI [Suspect]
     Active Substance: OLANZAPINE\SAMIDORPHAN L-MALATE
     Indication: Agitation
  3. REXULTI [Concomitant]
     Active Substance: BREXPIPRAZOLE
     Indication: Schizoaffective disorder bipolar type
     Dosage: 3 MILLIGRAM, QD
     Dates: start: 20240223, end: 20240614
  4. REXULTI [Concomitant]
     Active Substance: BREXPIPRAZOLE
     Dosage: 3 MILLIGRAM, QD
  5. DEPAKOTE [Concomitant]
     Active Substance: DIVALPROEX SODIUM
     Indication: Schizoaffective disorder bipolar type
     Dosage: 500 MILLIGRAM, QD
     Dates: start: 20240223, end: 20241122
  6. DEPAKOTE [Concomitant]
     Active Substance: DIVALPROEX SODIUM
     Dosage: 500 MILLIGRAM, QD
  7. CLONIDINE [Concomitant]
     Active Substance: CLONIDINE
     Indication: Post-traumatic stress disorder
     Dosage: 0.1 MILLIGRAM, QHS
  8. CLONIDINE [Concomitant]
     Active Substance: CLONIDINE
     Dosage: 0.1 MILLIGRAM, QHS

REACTIONS (3)
  - Off label use [Not Recovered/Not Resolved]
  - Therapeutic product effective for unapproved indication [Not Recovered/Not Resolved]
  - Blood triglycerides increased [Not Recovered/Not Resolved]

NARRATIVE: CASE EVENT DATE: 20250101
